FAERS Safety Report 8022037 (Version 2)
Quarter: 2013Q2

REPORT INFORMATION
  Report Type: Report from Study
  Country: CA (occurrence: CA)
  Receive Date: 20110705
  Receipt Date: 20130604
  Transmission Date: 20140414
  Serious: Yes (Other)
  Sender: FDA-Public Use
  Company Number: PHHY2011CA55621

PATIENT
  Age: 65 Year
  Sex: Female

DRUGS (5)
  1. ACLASTA [Suspect]
     Indication: OSTEOPOROSIS
     Dosage: 5 MG
     Route: 042
     Dates: start: 20090310
  2. ACLASTA [Suspect]
     Dosage: 5 MG
     Route: 042
     Dates: start: 20100729
  3. ACLASTA [Suspect]
     Dosage: 5 MG
     Route: 042
     Dates: start: 20110707
  4. ACLASTA [Suspect]
     Dosage: 5 MG
     Route: 042
     Dates: start: 20120725
  5. ACLASTA [Suspect]
     Dosage: 5 MG
     Route: 042
     Dates: start: 20130530

REACTIONS (2)
  - Injection site haemorrhage [Unknown]
  - Inappropriate schedule of drug administration [Unknown]
